FAERS Safety Report 13313960 (Version 1)
Quarter: 2017Q1

REPORT INFORMATION
  Report Type: Spontaneous
  Country: SI (occurrence: SI)
  Receive Date: 20170309
  Receipt Date: 20170309
  Transmission Date: 20170428
  Serious: Yes (Other)
  Sender: FDA-Public Use
  Company Number: SI-BAYER-2017-023969

PATIENT

DRUGS (1)
  1. STIVARGA [Suspect]
     Active Substance: REGORAFENIB
     Indication: COLORECTAL CANCER METASTATIC

REACTIONS (4)
  - Palmar-plantar erythrodysaesthesia syndrome [None]
  - Dysphonia [None]
  - Colorectal cancer metastatic [None]
  - Hypertension [None]
